FAERS Safety Report 9216109 (Version 3)
Quarter: 2013Q2

REPORT INFORMATION
  Report Type: Spontaneous
  Country: GB (occurrence: None)
  Receive Date: 20130402
  Receipt Date: 20130626
  Transmission Date: 20140414
  Serious: Yes (Other)
  Sender: FDA-Public Use
  Company Number: 2013MPI00184

PATIENT
  Age: 33 Year
  Sex: Male

DRUGS (1)
  1. ADCETRIS [Suspect]
     Indication: LYMPHOMA

REACTIONS (10)
  - Graft versus host disease [None]
  - Hypoxia [None]
  - Liver function test abnormal [None]
  - Graft versus host disease in skin [None]
  - Anaplastic large-cell lymphoma [None]
  - Neoplasm recurrence [None]
  - Blood bilirubin increased [None]
  - Blood alkaline phosphatase increased [None]
  - Abdominal pain [None]
  - Disease progression [None]
